FAERS Safety Report 7658915-7 (Version None)
Quarter: 2011Q3

REPORT INFORMATION
  Report Type: 
  Country: None (occurrence: None)
  Receive Date: 20110805
  Receipt Date: 20110801
  Transmission Date: 20111222
  Serious: Yes (Other)
  Sender: FDA-Public Use
  Company Number: JP-B.I. PHARMACEUTICALS,INC./RIDGEFIELD-2011-BP-18951NB

PATIENT
  Age: 65 Year
  Sex: Female

DRUGS (5)
  1. UNISIA [Concomitant]
     Indication: HYPERTENSION
     Dosage: 1 TABLET
     Route: 048
     Dates: start: 20101201, end: 20110801
  2. PRADAXA [Suspect]
     Indication: ATRIAL FIBRILLATION
     Dosage: 300 MG
     Route: 048
     Dates: start: 20110418, end: 20110729
  3. ALOSENN [Concomitant]
     Indication: CONSTIPATION
     Dosage: 1 G
     Route: 048
  4. LIVALO [Concomitant]
     Indication: HYPERLIPIDAEMIA
     Dosage: 1 MG
     Route: 048
  5. MAGNESIUM OXIDE [Concomitant]
     Indication: CONSTIPATION
     Dosage: 330 MG
     Route: 048

REACTIONS (3)
  - ANAEMIA [None]
  - ASTHENIA [None]
  - BLOOD PRESSURE DECREASED [None]
